FAERS Safety Report 8988404 (Version 1)
Quarter: 2012Q4

REPORT INFORMATION
  Report Type: Spontaneous
  Country: US (occurrence: None)
  Receive Date: 20121221
  Receipt Date: 20121221
  Transmission Date: 20130627
  Serious: Yes (Death)
  Sender: FDA-Public Use
  Company Number: None

PATIENT
  Age: 74 Year
  Sex: Female
  Weight: 103 kg

DRUGS (3)
  1. DECITABINE [Suspect]
     Indication: MDS
     Dosage: 38.2 mg (IV infusion)
     Route: 042
     Dates: start: 20121005, end: 20121122
  2. DECITABINE [Suspect]
     Indication: ACUTE MYELOID LEUKEMIA
     Dosage: 38.2 mg (IV infusion)
     Route: 042
     Dates: start: 20121005, end: 20121122
  3. LBH589 [Suspect]
     Dosage: PO, weeks 1+2 each cycle
     Route: 048
     Dates: start: 20121015, end: 20121126

REACTIONS (7)
  - Tachycardia [None]
  - Septic shock [None]
  - Bone marrow transplant [None]
  - Anuria [None]
  - Fluid overload [None]
  - Renal failure acute [None]
  - Pneumonia [None]
